FAERS Safety Report 9316721 (Version 1)
Quarter: 2013Q2

REPORT INFORMATION
  Report Type: Spontaneous
  Country: BE (occurrence: None)
  Receive Date: 20130523
  Receipt Date: 20130523
  Transmission Date: 20140414
  Serious: Yes (Other)
  Sender: FDA-Public Use
  Company Number: SYM-2013-03807

PATIENT
  Age: 19 Year
  Sex: Female

DRUGS (2)
  1. FLAGYL [Suspect]
     Indication: GASTROENTERITIS
     Route: 048
     Dates: start: 20130504
  2. XEPLION (PALIPERID-ONE PALMITATE) (PALIPERIDONE PALMITATE) [Concomitant]

REACTIONS (1)
  - Hallucination, auditory [None]
